FAERS Safety Report 18740922 (Version 2)
Quarter: 2021Q1

REPORT INFORMATION
  Report Type: Report from Study
  Country: CO (occurrence: CO)
  Receive Date: 20210114
  Receipt Date: 20210129
  Transmission Date: 20210419
  Serious: Yes (Death, Hospitalization)
  Sender: FDA-Public Use
  Company Number: NVSC2020CO298941

PATIENT
  Age: 59 Year
  Sex: Female

DRUGS (2)
  1. FEMARA [Suspect]
     Active Substance: LETROZOLE
     Indication: BREAST CANCER
     Dosage: UNK, QD
     Route: 048
  2. KISQALI [Suspect]
     Active Substance: RIBOCICLIB
     Indication: HORMONE RECEPTOR POSITIVE BREAST CANCER
     Dosage: 600 MG, QD
     Route: 048

REACTIONS (10)
  - Vomiting [Unknown]
  - Metastases to bone [Unknown]
  - Lower limb fracture [Unknown]
  - Death [Fatal]
  - Drug intolerance [Unknown]
  - Breast cancer recurrent [Unknown]
  - Malaise [Unknown]
  - Decreased appetite [Unknown]
  - Pain [Unknown]
  - Fluid intake reduced [Unknown]

NARRATIVE: CASE EVENT DATE: 20210109
